FAERS Safety Report 17174208 (Version 1)
Quarter: 2019Q4

REPORT INFORMATION
  Report Type: Spontaneous
  Country: US (occurrence: US)
  Receive Date: 20191126
  Receipt Date: 20191126
  Transmission Date: 20200122
  Serious: No
  Sender: FDA-Public Use
  Company Number: None

PATIENT
  Age: 48 Year
  Sex: Female

DRUGS (1)
  1. IBRANCE [Suspect]
     Active Substance: PALBOCICLIB
     Route: 048
     Dates: start: 20190927

REACTIONS (4)
  - Superficial vein prominence [None]
  - Pain in extremity [None]
  - Vein disorder [None]
  - Oedema peripheral [None]

NARRATIVE: CASE EVENT DATE: 20191126
